FAERS Safety Report 15775248 (Version 1)
Quarter: 2018Q4

REPORT INFORMATION
  Report Type: Spontaneous
  Country: US (occurrence: US)
  Receive Date: 20181231
  Receipt Date: 20181231
  Transmission Date: 20190205
  Serious: Yes (Other)
  Sender: FDA-Public Use
  Company Number: US-ACCORD-098243

PATIENT
  Age: 48 Year
  Sex: Female

DRUGS (2)
  1. ETOPOSIDE. [Suspect]
     Active Substance: ETOPOSIDE
     Indication: NEUROENDOCRINE CARCINOMA METASTATIC
     Dosage: ANOTHER TWO CYCLES OF CISPLATIN/ETOPOSIDE OVER 2 MONTH
     Dates: end: 201502
  2. CISPLATIN. [Suspect]
     Active Substance: CISPLATIN
     Indication: NEUROENDOCRINE CARCINOMA METASTATIC
     Dosage: ANOTHER TWO CYCLES OF CISPLATIN/ETOPOSIDE OVER 2 MONTHS
     Dates: end: 201502

REACTIONS (1)
  - Neuropathy peripheral [Unknown]

NARRATIVE: CASE EVENT DATE: 201507
